FAERS Safety Report 6653756-1 (Version None)
Quarter: 2010Q1

REPORT INFORMATION
  Report Type: 
  Country: None (occurrence: None)
  Receive Date: 20100326
  Receipt Date: 20100319
  Transmission Date: 20100710
  Serious: Yes (Death, Hospitalization)
  Sender: FDA-Public Use
  Company Number: A0768477A

PATIENT
  Age: 51 Year
  Sex: Male

DRUGS (5)
  1. PROMACTA [Suspect]
     Indication: IDIOPATHIC THROMBOCYTOPENIC PURPURA
     Dosage: 50MG PER DAY
     Route: 048
     Dates: start: 20090127, end: 20090416
  2. DIGOXIN [Concomitant]
  3. ARIXTRA [Concomitant]
  4. PREDNISONE [Concomitant]
  5. PERCODAN-DEMI [Concomitant]

REACTIONS (7)
  - CARDIAC FAILURE CONGESTIVE [None]
  - DEATH [None]
  - DRUG INEFFECTIVE [None]
  - EMBOLISM [None]
  - MYOCARDIAL INFARCTION [None]
  - PANCREATITIS [None]
  - PLATELET COUNT DECREASED [None]
